FAERS Safety Report 10203877 (Version 1)
Quarter: 2014Q2

REPORT INFORMATION
  Report Type: Spontaneous
  Country: US (occurrence: US)
  Receive Date: 20140529
  Receipt Date: 20140529
  Transmission Date: 20141212
  Serious: No
  Sender: FDA-Public Use
  Company Number: US-PFIZER INC-2014143752

PATIENT
  Age: 52 Year
  Sex: Female

DRUGS (3)
  1. SUTENT [Suspect]
     Indication: SOFT TISSUE SARCOMA
     Dosage: 50 MG, UNK
     Dates: start: 20140415
  2. TAMOXIFEN CITRATE [Concomitant]
     Dosage: UNK
  3. FINASTERIDE [Concomitant]
     Dosage: UNK

REACTIONS (3)
  - Disease progression [Unknown]
  - Soft tissue sarcoma [Unknown]
  - Off label use [Unknown]
